FAERS Safety Report 8874386 (Version 3)
Quarter: 2013Q1

REPORT INFORMATION
  Report Type: Spontaneous
  Country: AU (occurrence: AU)
  Receive Date: 20121030
  Receipt Date: 20130128
  Transmission Date: 20140127
  Serious: Yes (Other)
  Sender: FDA-Public Use
  Company Number: AU-ASTRAZENECA-2012SE80634

PATIENT
  Sex: Male

DRUGS (2)
  1. BRILINTA [Suspect]
     Dosage: SINGLE DOSE
     Route: 048
     Dates: start: 20121022, end: 20121022
  2. BETA BLOCKER [Concomitant]

REACTIONS (1)
  - Bradycardia [Recovered/Resolved]
